FAERS Safety Report 10055838 (Version 1)
Quarter: 2014Q2

REPORT INFORMATION
  Report Type: Spontaneous
  Country: US (occurrence: US)
  Receive Date: 20140403
  Receipt Date: 20140403
  Transmission Date: 20141212
  Serious: Yes (Hospitalization)
  Sender: FDA-Public Use
  Company Number: US-JNJFOC-20140316221

PATIENT
  Age: 55 Year
  Sex: Male

DRUGS (18)
  1. FIRMAGON [Concomitant]
     Indication: PROSTATE CANCER
     Route: 058
     Dates: start: 20111024
  2. XGEVA [Concomitant]
     Indication: BONE PAIN
     Route: 058
     Dates: start: 20120405
  3. ZOMETA [Concomitant]
     Indication: BONE PAIN
     Route: 042
     Dates: start: 20110310
  4. EPOETIN ALFA [Concomitant]
     Indication: ANAEMIA
     Route: 058
     Dates: start: 20120220
  5. EXCEDRIN (ACETAMINOPHEN/ASPIRIN/CAFFEINE) [Concomitant]
     Indication: HEADACHE
     Route: 048
     Dates: start: 2012
  6. IBUPROFEN [Concomitant]
     Indication: BONE PAIN
     Route: 048
     Dates: start: 201205
  7. INSULIN [Concomitant]
     Indication: HYPERGLYCAEMIA
     Route: 030
     Dates: start: 20120520
  8. PEPCID [Concomitant]
     Indication: PROPHYLAXIS
     Route: 048
     Dates: start: 20120520
  9. TYLENOL [Concomitant]
     Indication: BONE PAIN
     Route: 048
     Dates: start: 20120503
  10. FLOMAX [Concomitant]
     Indication: URINARY RETENTION
     Route: 048
     Dates: start: 20120520
  11. COMPAZINE [Concomitant]
     Indication: NAUSEA
     Route: 048
     Dates: start: 20120520
  12. ABIRATERONE ACETATE [Suspect]
     Indication: PROSTATE CANCER
     Route: 048
     Dates: start: 20120503
  13. GDC-0980 [Suspect]
     Indication: PROSTATE CANCER
     Route: 048
     Dates: start: 20120503
  14. PREDNISONE [Suspect]
     Indication: PROSTATE CANCER
     Route: 065
     Dates: start: 20120503
  15. METFORMIN [Concomitant]
     Indication: HYPERGLYCAEMIA
     Route: 048
     Dates: start: 20120510
  16. DIOVAN [Concomitant]
     Indication: HYPERTENSION
     Route: 048
     Dates: start: 2008
  17. COREG [Concomitant]
     Indication: HYPERTENSION
     Route: 048
     Dates: start: 2008
  18. SILODOSIN [Concomitant]
     Indication: URINARY RETENTION
     Route: 048
     Dates: start: 2011

REACTIONS (2)
  - Rash maculo-papular [Recovered/Resolved]
  - Dyspnoea [Unknown]
